FAERS Safety Report 9423333 (Version 1)
Quarter: 2013Q3

REPORT INFORMATION
  Report Type: Report from Study
  Country: BE (occurrence: BE)
  Receive Date: 20130726
  Receipt Date: 20130726
  Transmission Date: 20140515
  Serious: Yes (Hospitalization)
  Sender: FDA-Public Use
  Company Number: BE-ABBOTT-13P-013-1123575-00

PATIENT
  Sex: Female
  Weight: 58 kg

DRUGS (3)
  1. HUMIRA [Suspect]
     Indication: RHEUMATOID ARTHRITIS
     Dates: start: 20120522
  2. PANTOPRAZOL [Concomitant]
     Indication: RHEUMATOID ARTHRITIS
     Dates: start: 201201
  3. METHOTREXATE (LEDERTREXATE) [Concomitant]
     Indication: OESOPHAGITIS
     Dates: start: 2005

REACTIONS (2)
  - Angina pectoris [Recovered/Resolved]
  - Coronary artery stenosis [Unknown]
